FAERS Safety Report 22604778 (Version 1)
Quarter: 2023Q2

REPORT INFORMATION
  Report Type: Spontaneous
  Country: ES (occurrence: ES)
  Receive Date: 20230615
  Receipt Date: 20230615
  Transmission Date: 20230722
  Serious: Yes (Life-Threatening)
  Sender: FDA-Public Use
  Company Number: None

PATIENT
  Age: 59 Year
  Sex: Male

DRUGS (9)
  1. PAZOPANIB [Suspect]
     Active Substance: PAZOPANIB
     Indication: Renal cancer
     Dosage: 800.0 MG C/24 H
     Route: 048
     Dates: start: 20230327
  2. METOCLOPRAMIDA ACCORD [Concomitant]
     Indication: Conjunctivitis
     Dosage: 10.0 MG  A- DECOCE (30 TABLETS)
     Route: 048
     Dates: start: 20220905
  3. CODEINE PHOSPHATE [Concomitant]
     Active Substance: CODEINE PHOSPHATE
     Indication: Abdominal pain
     Dosage: 28.7 MG DECOCEN (20 TABLETS)
     Route: 048
     Dates: start: 20230320
  4. FENTANYL [Concomitant]
     Active Substance: FENTANYL
     Indication: Product used for unknown indication
     Dosage: 1.0 PARCHE C/72 HORAS (5 PARCHES (PAPEL/AL/AMAB)
     Route: 065
     Dates: start: 20230321
  5. ONDANSETRON [Concomitant]
     Active Substance: ONDANSETRON
     Indication: Renal neoplasm
     Dosage: 4.0 MG C/4 HORAS (15 TABLETS)
     Route: 048
     Dates: start: 20230123
  6. DEXAMETHASONE [Concomitant]
     Active Substance: DEXAMETHASONE
     Indication: Renal neoplasm
     Dosage: 4.0 MG DECO (30 TABLETS)
     Route: 048
     Dates: start: 20230328
  7. CALCIFEDIOL [Concomitant]
     Active Substance: CALCIFEDIOL
     Indication: Conjunctivitis
     Dosage: 16000.0 UI C/14 DIAS (10 DRINKABLE AMPOULES OR 1.5 ML)
     Route: 048
     Dates: start: 20221122
  8. ALPRAZOLAM [Concomitant]
     Active Substance: ALPRAZOLAM
     Indication: Conjunctivitis
     Dosage: 0.25 MG C/6 HORAS (30 TABLETS)
     Route: 048
     Dates: start: 20221031
  9. LORAZEPAM [Concomitant]
     Active Substance: LORAZEPAM
     Indication: Renal neoplasm
     Dosage: 1.0 MG C/24 H NOC (50 TABLETS)
     Route: 048
     Dates: start: 20220804

REACTIONS (1)
  - Haemolytic anaemia [Recovered/Resolved]

NARRATIVE: CASE EVENT DATE: 20230427
